FAERS Safety Report 6962589-8 (Version None)
Quarter: 2010Q3

REPORT INFORMATION
  Report Type: 
  Country: None (occurrence: None)
  Receive Date: 20100902
  Receipt Date: 20100823
  Transmission Date: 20110219
  Serious: Yes (Death, Hospitalization)
  Sender: FDA-Public Use
  Company Number: RO-ELI_LILLY_AND_COMPANY-RO200609002729

PATIENT
  Sex: Male
  Weight: 88 kg

DRUGS (5)
  1. PEMETREXED [Suspect]
     Indication: NON-SMALL CELL LUNG CANCER
     Dosage: 500 MG/M2, EVERY 3 WEEKS
     Route: 042
     Dates: start: 20060727, end: 20060817
  2. PEMETREXED [Suspect]
     Dosage: 375 MG/M2, EVERY 3 WEEKS
     Route: 042
     Dates: start: 20060817
  3. FOLIC ACID [Concomitant]
     Dosage: 1000 UG, UNK
     Dates: start: 20060720
  4. METYLPREDNISOLON SOLUBILE [Concomitant]
     Dosage: 40 MG,3 X 3 WEEK
     Dates: start: 20060818, end: 20060820
  5. VITAMIN B-12 [Concomitant]

REACTIONS (2)
  - GASTROINTESTINAL HAEMORRHAGE [None]
  - RENAL FAILURE [None]
